FAERS Safety Report 7552399-5 (Version None)
Quarter: 2011Q2

REPORT INFORMATION
  Report Type: 
  Country: None (occurrence: None)
  Receive Date: 20110616
  Receipt Date: 20110517
  Transmission Date: 20111010
  Serious: Yes (Other)
  Sender: FDA-Public Use
  Company Number: PHFR2011GB03138

PATIENT
  Sex: Female

DRUGS (1)
  1. AREDIA [Suspect]
     Dosage: UNK
     Route: 065

REACTIONS (2)
  - NEUROPATHY PERIPHERAL [None]
  - OSTEOARTHRITIS [None]
